FAERS Safety Report 18142435 (Version 2)
Quarter: 2020Q3

REPORT INFORMATION
  Report Type: Spontaneous
  Country: NL (occurrence: NL)
  Receive Date: 20200813
  Receipt Date: 20200821
  Transmission Date: 20201103
  Serious: Yes (Other)
  Sender: FDA-Public Use
  Company Number: NL-TEVA-2020-NL-1813223

PATIENT
  Age: 63 Year
  Sex: Male
  Weight: 70 kg

DRUGS (2)
  1. FLUTICASON?PROPIONAAT NEUSSPRAY 50UG/DO / BRAND NAME NOT SPECIFIED [Concomitant]
     Dosage: 50 MICROGRAM PER DOSE, THERAPY START DATE : ASKU, THERAPY END DATE : ASKU
  2. CETIRIZINE [Suspect]
     Active Substance: CETIRIZINE HYDROCHLORIDE
     Indication: SEASONAL ALLERGY
     Dosage: 1 DOSAGE FORMS DAILY;
     Route: 065
     Dates: start: 2020, end: 20200607

REACTIONS (3)
  - Arrhythmia [Recovered/Resolved]
  - Hiccups [Recovered/Resolved]
  - Therapeutic response unexpected [Unknown]

NARRATIVE: CASE EVENT DATE: 20200603
